FAERS Safety Report 8739238 (Version 2)
Quarter: 2012Q4

REPORT INFORMATION
  Report Type: 
  Country: NL (occurrence: NL)
  Receive Date: 20120823
  Receipt Date: 20121009
  Transmission Date: 20130627
  Serious: Yes (Other)
  Sender: FDA-Public Use
  Company Number: NL-JNJFOC-20120809254

PATIENT
  Age: 65 None
  Sex: Male

DRUGS (5)
  1. REMICADE [Suspect]
     Indication: ANKYLOSING SPONDYLITIS
     Route: 042
     Dates: start: 201204, end: 201208
  2. REMICADE [Suspect]
     Indication: COLITIS ULCERATIVE
     Route: 042
     Dates: start: 201204, end: 201208
  3. PURINETHOL [Concomitant]
     Route: 065
  4. SINTRON [Concomitant]
     Route: 065
  5. PREDNISON [Concomitant]
     Route: 065

REACTIONS (2)
  - Peripheral nerve lesion [Recovering/Resolving]
  - Osteoarthritis [Unknown]
